FAERS Safety Report 4290778-2 (Version None)
Quarter: 2004Q1

REPORT INFORMATION
  Report Type: 
  Country: None (occurrence: None)
  Receive Date: 20040211
  Receipt Date: 20031006
  Transmission Date: 20041129
  Serious: No
  Sender: FDA-Public Use
  Company Number: US-GLAXOSMITHKLINE-A0429067A

PATIENT
  Sex: Male

DRUGS (1)
  1. PAXIL [Suspect]
     Indication: ANXIETY DISORDER
     Dosage: 40MG UNKNOWN
     Route: 048

REACTIONS (3)
  - LIBIDO DECREASED [None]
  - MOOD ALTERED [None]
  - PERSONALITY DISORDER [None]
